FAERS Safety Report 6876914-X (Version None)
Quarter: 2010Q3

REPORT INFORMATION
  Report Type: 
  Country: None (occurrence: None)
  Receive Date: 20100727
  Receipt Date: 20100727
  Transmission Date: 20110219
  Serious: No
  Sender: FDA-Public Use
  Company Number: None

PATIENT
  Age: 8 Year
  Sex: Male
  Weight: 24.4942 kg

DRUGS (2)
  1. SINGULAIR [Suspect]
     Indication: SEASONAL ALLERGY
     Dosage: 5MG 1X DAY
     Dates: start: 20060801, end: 20061031
  2. SINGULAIR [Suspect]
     Indication: SEASONAL ALLERGY
     Dosage: 5MG 1X DAY
     Dates: start: 20100601, end: 20100620

REACTIONS (5)
  - ABNORMAL BEHAVIOUR [None]
  - AGGRESSION [None]
  - CONDITION AGGRAVATED [None]
  - EMOTIONAL DISORDER OF CHILDHOOD [None]
  - MULTIPLE ALLERGIES [None]
